FAERS Safety Report 11674674 (Version 1)
Quarter: 2015Q4

REPORT INFORMATION
  Report Type: Spontaneous
  Country: US (occurrence: US)
  Receive Date: 20151027
  Receipt Date: 20151027
  Transmission Date: 20160304
  Serious: No
  Sender: FDA-Public Use
  Company Number: US-ELI_LILLY_AND_COMPANY-US201008000157

PATIENT
  Age: 53 Year
  Sex: Female

DRUGS (1)
  1. FORTEO [Suspect]
     Active Substance: TERIPARATIDE
     Indication: OSTEOPOROSIS
     Dosage: 20 UG, DAILY (1/D)
     Dates: start: 20100721

REACTIONS (15)
  - Abnormal dreams [Not Recovered/Not Resolved]
  - Arthralgia [Unknown]
  - Injection site discolouration [Unknown]
  - Diarrhoea [Unknown]
  - Injection site reaction [Recovered/Resolved]
  - Alopecia [Unknown]
  - Injection site erythema [Unknown]
  - Local reaction [Unknown]
  - Dyspepsia [Unknown]
  - Muscle spasms [Unknown]
  - Nausea [Unknown]
  - Poor quality sleep [Not Recovered/Not Resolved]
  - Abdominal pain [Not Recovered/Not Resolved]
  - Sleep disorder [Not Recovered/Not Resolved]
  - Injection site swelling [Unknown]

NARRATIVE: CASE EVENT DATE: 20100721
